FAERS Safety Report 12285996 (Version 2)
Quarter: 2016Q2

REPORT INFORMATION
  Report Type: Spontaneous
  Country: AT (occurrence: AT)
  Receive Date: 20160420
  Receipt Date: 20160427
  Transmission Date: 20160815
  Serious: Yes (Life-Threatening, Hospitalization, Other)
  Sender: FDA-Public Use
  Company Number: AT-009507513-1604AUT012298

PATIENT

DRUGS (3)
  1. PEGINTERFERON ALFA-2B [Suspect]
     Active Substance: PEGINTERFERON ALFA-2B
     Indication: CHRONIC HEPATITIS C
     Dosage: UNK
  2. BOCEPREVIR [Suspect]
     Active Substance: BOCEPREVIR
     Indication: CHRONIC HEPATITIS C
     Dosage: UNK
     Route: 048
  3. RIBAVIRIN. [Suspect]
     Active Substance: RIBAVIRIN
     Indication: CHRONIC HEPATITIS C
     Dosage: UNK
     Route: 048

REACTIONS (10)
  - Infectious pleural effusion [Unknown]
  - Urinary tract infection [Unknown]
  - Ear infection fungal [Unknown]
  - Periodontitis [Unknown]
  - Pharyngitis [Unknown]
  - Tonsillitis [Unknown]
  - Gingivitis [Unknown]
  - Influenza [Unknown]
  - Oral herpes [Unknown]
  - Gastroenteritis [Unknown]
